FAERS Safety Report 9142635 (Version 6)
Quarter: 2018Q3

REPORT INFORMATION
  Report Type: Spontaneous
  Country: BR (occurrence: BR)
  Receive Date: 20130306
  Receipt Date: 20180703
  Transmission Date: 20181010
  Serious: Yes (Hospitalization, Other)
  Sender: FDA-Public Use
  Company Number: PHHY2013BR020697

PATIENT
  Sex: Male
  Weight: 75 kg

DRUGS (8)
  1. CODATEN [Suspect]
     Active Substance: CODEINE PHOSPHATE\DICLOFENAC SODIUM
     Dosage: 50 MG, UKN (AFTER THIRD SURGERY)
     Route: 048
  2. TYLEX [Suspect]
     Active Substance: ACETAMINOPHEN\CODEINE PHOSPHATE
     Indication: PAIN
     Dosage: 100 MG, QD (DAILY)
     Route: 048
  3. VIAGRA [Suspect]
     Active Substance: SILDENAFIL CITRATE
     Indication: SEXUAL DYSFUNCTION
     Dosage: UNK
     Route: 065
  4. CODATEN [Suspect]
     Active Substance: CODEINE PHOSPHATE\DICLOFENAC SODIUM
     Indication: PAIN
     Dosage: 50 MG, Q12H (EVERY 12 HOURS)
     Route: 048
     Dates: start: 200903
  5. DICLOFENAC [Suspect]
     Active Substance: DICLOFENAC
     Indication: PAIN
     Dosage: 50 MG (1 TABLET)
     Route: 048
     Dates: start: 20130301
  6. DIMORF [Suspect]
     Active Substance: MORPHINE SULFATE
     Indication: PAIN
     Dosage: UNK
     Route: 065
  7. CODATEN [Suspect]
     Active Substance: CODEINE PHOSPHATE\DICLOFENAC SODIUM
     Indication: ARTHRALGIA
     Dosage: 50 MG, Q8H (1 TABLET EVERY 8 HOURS)
     Route: 048
     Dates: start: 201010
  8. CODATEN [Suspect]
     Active Substance: CODEINE PHOSPHATE\DICLOFENAC SODIUM
     Dosage: 50 MG, UKN (AFTER LAST SURGERY)
     Route: 048

REACTIONS (8)
  - Hypertension [Not Recovered/Not Resolved]
  - Device related infection [Recovered/Resolved]
  - Sexual dysfunction [Not Recovered/Not Resolved]
  - Pain in extremity [Not Recovered/Not Resolved]
  - Pyrexia [Recovered/Resolved]
  - Pain [Recovering/Resolving]
  - Hip fracture [Unknown]
  - Drug ineffective [Unknown]

NARRATIVE: CASE EVENT DATE: 2010
